FAERS Safety Report 10833617 (Version 2)
Quarter: 2015Q1

REPORT INFORMATION
  Report Type: Report from Study
  Country: US (occurrence: US)
  Receive Date: 20150219
  Receipt Date: 20150227
  Transmission Date: 20150721
  Serious: Yes (Death, Hospitalization, Other)
  Sender: FDA-Public Use
  Company Number: PHEH2012US021525

PATIENT
  Age: 69 Year
  Sex: Female

DRUGS (3)
  1. GLEEVEC [Suspect]
     Active Substance: IMATINIB MESYLATE
     Indication: SOFT TISSUE SARCOMA
  2. ASPIRIN. [Concomitant]
     Active Substance: ASPIRIN
     Indication: PRODUCT USED FOR UNKNOWN INDICATION
     Route: 065
  3. GLEEVEC [Suspect]
     Active Substance: IMATINIB MESYLATE
     Indication: GASTRIC CANCER
     Dosage: 400 MG, (1 TABLET) QD
     Route: 048
     Dates: start: 20121017

REACTIONS (11)
  - Death [Fatal]
  - Eye swelling [Unknown]
  - Off label use [Unknown]
  - Reflexes abnormal [Unknown]
  - Nausea [Unknown]
  - Vomiting [Unknown]
  - Cerebrovascular accident [Unknown]
  - Visual field defect [Unknown]
  - Aneurysm [Unknown]
  - Haemorrhage [Unknown]
  - Peripheral swelling [Unknown]

NARRATIVE: CASE EVENT DATE: 20121025
